FAERS Safety Report 6955660-8 (Version None)
Quarter: 2010Q3

REPORT INFORMATION
  Report Type: 
  Country: None (occurrence: None)
  Receive Date: 20100830
  Receipt Date: 20100816
  Transmission Date: 20110219
  Serious: Yes (Hospitalization)
  Sender: FDA-Public Use
  Company Number: US-DX529-2010DX000038

PATIENT
  Age: 26 Year
  Sex: Male
  Weight: 86.18 kg

DRUGS (2)
  1. KALBITOR [Suspect]
     Indication: HEREDITARY ANGIOEDEMA
     Route: 058
     Dates: start: 20100807, end: 20100807
  2. PHENERGAN HCL [Concomitant]
     Indication: NAUSEA
     Dates: start: 20100807, end: 20100807

REACTIONS (9)
  - ABDOMINAL PAIN [None]
  - BLOOD GLUCOSE INCREASED [None]
  - CONDITION AGGRAVATED [None]
  - DEHYDRATION [None]
  - HALLUCINATION [None]
  - HEREDITARY ANGIOEDEMA [None]
  - LIVER FUNCTION TEST ABNORMAL [None]
  - LYMPHOCYTE COUNT DECREASED [None]
  - NEUTROPHIL COUNT INCREASED [None]
